FAERS Safety Report 20732119 (Version 2)
Quarter: 2022Q2

REPORT INFORMATION
  Report Type: Spontaneous
  Country: US (occurrence: US)
  Receive Date: 20220420
  Receipt Date: 20220425
  Transmission Date: 20220721
  Serious: Yes (Hospitalization, Other)
  Sender: FDA-Public Use
  Company Number: US-PFIZER INC-202200582955

PATIENT
  Age: 64 Year
  Sex: Female
  Weight: 102.06 kg

DRUGS (8)
  1. ALPRAZOLAM [Suspect]
     Active Substance: ALPRAZOLAM
     Indication: Panic disorder
     Dosage: 3 MG
     Dates: start: 2008
  2. ALPRAZOLAM [Suspect]
     Active Substance: ALPRAZOLAM
     Dosage: 2 MG, 1X/DAY (AT NIGHT)
  3. TRILIPIX [Concomitant]
     Active Substance: FENOFIBRIC ACID
     Indication: Blood triglycerides
     Dosage: 135 MG
  4. ASPIRIN [Concomitant]
     Active Substance: ASPIRIN
     Indication: Anticoagulant therapy
     Dosage: 81 MG, 2X/DAY(81 MG 2- 21/2 TABLETS ONCE A DAY)
  5. VITAMIN D3 [Concomitant]
     Active Substance: CHOLECALCIFEROL
     Indication: Vitamin supplementation
     Dosage: UNK, 1X/DAY
  6. TOPROL XL [Concomitant]
     Active Substance: METOPROLOL SUCCINATE
     Indication: Hypertension
     Dosage: 25 MG, 1X/DAY (IN THE EVENING)
  7. TOPROL XL [Concomitant]
     Active Substance: METOPROLOL SUCCINATE
     Dosage: 50 MG, 1X/DAY (IN THE MORNING)
  8. LANTUS [Concomitant]
     Active Substance: INSULIN GLARGINE
     Indication: Diabetes mellitus
     Dosage: 18 IU, 2X/DAY

REACTIONS (24)
  - Kidney rupture [Unknown]
  - Protein urine present [Unknown]
  - Cerebrovascular accident [Unknown]
  - Pharyngeal swelling [Unknown]
  - Haemorrhage [Unknown]
  - Ulcer [Unknown]
  - Angioedema [Not Recovered/Not Resolved]
  - Illness [Not Recovered/Not Resolved]
  - Speech disorder [Unknown]
  - Fatigue [Not Recovered/Not Resolved]
  - Cystitis [Unknown]
  - Hypoacusis [Unknown]
  - Somnolence [Not Recovered/Not Resolved]
  - Blood insulin abnormal [Unknown]
  - Liver disorder [Unknown]
  - Abdominal discomfort [Not Recovered/Not Resolved]
  - Bone pain [Unknown]
  - Pain in extremity [Unknown]
  - Hepatomegaly [Unknown]
  - Infection [Not Recovered/Not Resolved]
  - Emotional distress [Unknown]
  - Anxiety [Unknown]
  - Anger [Unknown]
  - Sleep disorder [Not Recovered/Not Resolved]

NARRATIVE: CASE EVENT DATE: 20210101
